FAERS Safety Report 25828502 (Version 1)
Quarter: 2025Q3

REPORT INFORMATION
  Report Type: Spontaneous
  Country: JP (occurrence: JP)
  Receive Date: 20250922
  Receipt Date: 20250922
  Transmission Date: 20251021
  Serious: Yes (Hospitalization)
  Sender: INDOCO REMEDIES LIMITED
  Company Number: JP-INDOCO-IND-2025-JP-LIT-00768

PATIENT
  Age: 87 Year
  Sex: Male

DRUGS (3)
  1. APIXABAN [Suspect]
     Active Substance: APIXABAN
     Indication: Anticoagulant therapy
     Route: 065
  2. LIMAPROST [Concomitant]
     Active Substance: LIMAPROST
     Indication: Product used for unknown indication
     Route: 065
  3. MEROPENEM [Concomitant]
     Active Substance: MEROPENEM
     Indication: Pyelonephritis
     Route: 065

REACTIONS (2)
  - Haemorrhagic cholecystitis [Recovered/Resolved]
  - Haemoperitoneum [Recovered/Resolved]
